FAERS Safety Report 22068085 (Version 4)
Quarter: 2023Q4

REPORT INFORMATION
  Report Type: Report from Study
  Country: FR (occurrence: FR)
  Receive Date: 20230307
  Receipt Date: 20231202
  Transmission Date: 20240109
  Serious: Yes (Other)
  Sender: FDA-Public Use
  Company Number: FR-ABBVIE-4329683

PATIENT
  Age: 60 Year
  Sex: Male
  Weight: 80 kg

DRUGS (18)
  1. UPADACITINIB [Suspect]
     Active Substance: UPADACITINIB
     Indication: Rheumatoid arthritis
     Dosage: 15 MILLIGRAM
     Route: 048
     Dates: start: 20220406, end: 20221014
  2. UPADACITINIB [Suspect]
     Active Substance: UPADACITINIB
     Indication: Rheumatoid arthritis
     Dosage: 15 MILLIGRAM, LAST ADMIN DATE APR 2022
     Route: 048
     Dates: start: 20220402
  3. UPADACITINIB [Suspect]
     Active Substance: UPADACITINIB
     Indication: Rheumatoid arthritis
     Dosage: 15 MILLIGRAM
     Route: 048
     Dates: start: 20221028, end: 20230303
  4. UPADACITINIB [Suspect]
     Active Substance: UPADACITINIB
     Indication: Rheumatoid arthritis
     Dosage: 15 MILLIGRAM
     Route: 048
     Dates: start: 20210810, end: 20220328
  5. PREDNISONE [Concomitant]
     Active Substance: PREDNISONE
     Indication: Rheumatoid arthritis
     Dosage: 10 MILLIGRAM
     Dates: start: 20211019, end: 20220107
  6. PREDNISONE [Concomitant]
     Active Substance: PREDNISONE
     Indication: Rheumatoid arthritis
     Dosage: 30 MILLIGRAM
     Dates: start: 20210608, end: 20211018
  7. PREDNISONE [Concomitant]
     Active Substance: PREDNISONE
     Indication: Rheumatoid arthritis
     Dosage: 30 MILLIGRAM
     Route: 048
     Dates: start: 20210602, end: 20211018
  8. SARS-CoV-2 vaccine [Concomitant]
     Indication: COVID-19 prophylaxis
     Dosage: ONE IN ONCE
     Route: 030
     Dates: start: 20210402, end: 20210402
  9. SARS-CoV-2 vaccine [Concomitant]
     Indication: COVID-19 prophylaxis
     Dosage: ONE IN ONCE
     Route: 030
     Dates: start: 20210430, end: 20210430
  10. ROSUVASTATIN [Concomitant]
     Active Substance: ROSUVASTATIN
     Indication: Dyslipidaemia
     Dosage: 20 GRAM
     Route: 048
     Dates: start: 20180901
  11. INDAPAMIDE [Concomitant]
     Active Substance: INDAPAMIDE
     Indication: Hypertension
     Dosage: 1.5 MILLIGRAM
     Route: 048
     Dates: start: 20180101
  12. ASPIRIN DL-LYSINE [Concomitant]
     Active Substance: ASPIRIN DL-LYSINE
     Indication: Cerebrovascular accident
     Dosage: 100 MILLIGRAM
     Dates: start: 20180901
  13. ASPIRIN DL-LYSINE [Concomitant]
     Active Substance: ASPIRIN DL-LYSINE
     Indication: Cerebrovascular accident
     Dosage: 100 MILLIGRAM
     Route: 048
     Dates: start: 20180901
  14. METHOTREXATE [Concomitant]
     Active Substance: METHOTREXATE
     Indication: Rheumatoid arthritis
     Dates: start: 20210810
  15. STREPTOCOCCUS PNEUMONIAE [Concomitant]
     Indication: Immunisation
     Dosage: VACCINE
     Dates: start: 20210720, end: 20210720
  16. Lercapress [Concomitant]
     Indication: Hypertension
     Dosage: 20/20 MG
     Dates: start: 20180101
  17. VALACYCLOVIR HYDROCHLORIDE [Concomitant]
     Active Substance: VALACYCLOVIR HYDROCHLORIDE
     Indication: Herpes zoster
     Dosage: 500 MILLIGRAM
     Dates: start: 20211222, end: 20211229
  18. ENGERIX-B [Concomitant]
     Active Substance: HEPATITIS B VIRUS SUBTYPE ADW2 HBSAG SURFACE PROTEIN ANTIGEN
     Indication: Product used for unknown indication
     Dates: start: 20210519, end: 20210519

REACTIONS (1)
  - Osteoarthritis [Recovered/Resolved]

NARRATIVE: CASE EVENT DATE: 20221021
